FAERS Safety Report 4845857-5 (Version None)
Quarter: 2005Q4

REPORT INFORMATION
  Report Type: 
  Country: None (occurrence: None)
  Receive Date: 20051206
  Receipt Date: 20051202
  Transmission Date: 20060501
  Serious: Yes (Other)
  Sender: FDA-Public Use
  Company Number: DE-GLAXOSMITHKLINE-D0048169A

PATIENT

DRUGS (1)
  1. AVANDIA [Suspect]
     Route: 048

REACTIONS (1)
  - LEUKOCYTOSIS [None]
